FAERS Safety Report 7298282-4 (Version None)
Quarter: 2011Q1

REPORT INFORMATION
  Report Type: 
  Country: None (occurrence: None)
  Receive Date: 20110217
  Receipt Date: 20100223
  Transmission Date: 20110831
  Serious: No
  Sender: FDA-Public Use
  Company Number: US-PFIZER INC-2009258919

PATIENT
  Sex: Female
  Weight: 61.224 kg

DRUGS (2)
  1. LATANOPROST [Suspect]
     Dosage: UNK
  2. XALATAN [Suspect]
     Indication: GLAUCOMA
     Dosage: UNK
     Dates: start: 20080801

REACTIONS (1)
  - SKIN DISCOLOURATION [None]
